FAERS Safety Report 16052060 (Version 2)
Quarter: 2020Q2

REPORT INFORMATION
  Report Type: Spontaneous
  Country: US (occurrence: US)
  Receive Date: 20190308
  Receipt Date: 20200511
  Transmission Date: 20200713
  Serious: No
  Sender: FDA-Public Use
  Company Number: US-SA-2019SA062786

PATIENT
  Age: 54 Year
  Sex: Female

DRUGS (1)
  1. LANTUS [Suspect]
     Active Substance: INSULIN GLARGINE
     Indication: TYPE 2 DIABETES MELLITUS
     Dosage: 20 U, QD
     Route: 065

REACTIONS (5)
  - Nasal dryness [Unknown]
  - Nasal discomfort [Unknown]
  - Dry eye [Unknown]
  - Sinus pain [Unknown]
  - Epistaxis [Unknown]
